FAERS Safety Report 23051493 (Version 2)
Quarter: 2023Q4

REPORT INFORMATION
  Report Type: Spontaneous
  Country: FR (occurrence: FR)
  Receive Date: 20231010
  Receipt Date: 20231116
  Transmission Date: 20240110
  Serious: Yes (Other)
  Sender: FDA-Public Use
  Company Number: FR-009507513-2310FRA002114

PATIENT
  Sex: Female

DRUGS (5)
  1. KEYTRUDA [Suspect]
     Active Substance: PEMBROLIZUMAB
     Indication: Triple negative breast cancer
     Dosage: 200 MG EVERY 21 DAYS (TOTAL DOSE 1600 MG)
     Route: 042
     Dates: start: 20221124, end: 20230503
  2. TAXOL [Suspect]
     Active Substance: PACLITAXEL
     Indication: Triple negative breast cancer
     Dosage: 80 MILLIGRAM/SQ. METER, EVERY 21 DAYS DAY 1 AND DAY 8 (TOTAL DOSE: 1644 MG)
     Route: 042
     Dates: start: 20221124, end: 20230213
  3. CARBOPLATIN [Suspect]
     Active Substance: CARBOPLATIN
     Indication: Triple negative breast cancer
     Dosage: AREA UNDER THE CURVE (AUC) 1.5  EVERY 21 DAYS DAY 1 AND DAY 8 (TOTAL DOSE: 2555 MG)
     Route: 042
     Dates: start: 20221124, end: 20230213
  4. DOXORUBICIN [Suspect]
     Active Substance: DOXORUBICIN
     Indication: Triple negative breast cancer
     Dosage: UNK, Q3W, TOTAL DOSE WAS 462 MG
     Route: 042
     Dates: start: 20230228, end: 20230503
  5. CYCLOPHOSPHAMIDE [Suspect]
     Active Substance: CYCLOPHOSPHAMIDE
     Indication: Triple negative breast cancer
     Dosage: UNK, Q3W, TOTAL DOSE WAS 4620 MG
     Route: 042
     Dates: start: 20230228, end: 20230503

REACTIONS (3)
  - Breast cancer recurrent [Not Recovered/Not Resolved]
  - Malignant neoplasm progression [Not Recovered/Not Resolved]
  - Metastases to liver [Not Recovered/Not Resolved]

NARRATIVE: CASE EVENT DATE: 20230816
